FAERS Safety Report 10746255 (Version 2)
Quarter: 2016Q2

REPORT INFORMATION
  Report Type: Spontaneous
  Country: US (occurrence: US)
  Receive Date: 20150128
  Receipt Date: 20160518
  Transmission Date: 20160815
  Serious: No
  Sender: FDA-Public Use
  Company Number: US-EISAI MEDICAL RESEARCH-EC-2015-003296

PATIENT
  Sex: Female
  Weight: 86.18 kg

DRUGS (8)
  1. METFORMIN [Concomitant]
     Active Substance: METFORMIN HYDROCHLORIDE
     Indication: DIABETES MELLITUS
  2. ACIPHEX [Suspect]
     Active Substance: RABEPRAZOLE SODIUM
     Dosage: BRAND ACIPHEX
     Route: 048
     Dates: start: 2014, end: 2016
  3. ACIPHEX [Suspect]
     Active Substance: RABEPRAZOLE SODIUM
     Dosage: JANSSEN^S ACIPHEX
     Route: 048
     Dates: start: 2016, end: 201604
  4. ATENOLOL. [Concomitant]
     Active Substance: ATENOLOL
     Indication: ARRHYTHMIA
  5. ACIPHEX [Suspect]
     Active Substance: RABEPRAZOLE SODIUM
     Dosage: BRAND ACIPHEX (EISAI^S)
     Route: 048
     Dates: start: 201604
  6. ACIPHEX [Suspect]
     Active Substance: RABEPRAZOLE SODIUM
     Indication: GASTROOESOPHAGEAL REFLUX DISEASE
     Dosage: BRAND ACIPHEX
     Route: 048
     Dates: start: 2001, end: 2014
  7. ATENOLOL. [Concomitant]
     Active Substance: ATENOLOL
     Indication: MITRAL VALVE PROLAPSE
  8. ACIPHEX [Suspect]
     Active Substance: RABEPRAZOLE SODIUM
     Dosage: GENERIC ACIPHEX
     Route: 048
     Dates: start: 2014, end: 2014

REACTIONS (8)
  - Heart rate increased [Not Recovered/Not Resolved]
  - Dental caries [Recovered/Resolved]
  - Constipation [Not Recovered/Not Resolved]
  - Flatulence [Not Recovered/Not Resolved]
  - Blood gastrin increased [Not Recovered/Not Resolved]
  - Malaise [Unknown]
  - Drug ineffective [Recovered/Resolved]
  - Cardiac disorder [Unknown]

NARRATIVE: CASE EVENT DATE: 2014
